FAERS Safety Report 7052996-X (Version None)
Quarter: 2010Q4

REPORT INFORMATION
  Report Type: 
  Country: None (occurrence: None)
  Receive Date: 20101020
  Receipt Date: 20101014
  Transmission Date: 20110411
  Serious: No
  Sender: FDA-Public Use
  Company Number: US-BIOGENIDEC-2010BI035515

PATIENT
  Age: 51 Year
  Sex: Female

DRUGS (6)
  1. AVONEX [Suspect]
     Indication: MULTIPLE SCLEROSIS
     Route: 030
     Dates: start: 19980101, end: 20010101
  2. AVONEX [Suspect]
     Route: 030
     Dates: start: 20090801
  3. PROVIGIL [Concomitant]
     Indication: DEPRESSION
     Route: 048
  4. VENLAFAXINE [Concomitant]
     Indication: DEPRESSION
     Route: 048
  5. VITAMIN B 12 SUPPLEMENT [Concomitant]
     Indication: VITAMIN B12 DECREASED
     Route: 048
  6. VITAMIN B 12 SUPPLEMENT [Concomitant]
     Route: 030

REACTIONS (3)
  - FEELING ABNORMAL [None]
  - MULTIPLE SCLEROSIS RELAPSE [None]
  - VITAMIN D DECREASED [None]
